FAERS Safety Report 7200786-7 (Version None)
Quarter: 2010Q4

REPORT INFORMATION
  Report Type: 
  Country: None (occurrence: None)
  Receive Date: 20101228
  Receipt Date: 20101224
  Transmission Date: 20110411
  Serious: Yes (Other)
  Sender: FDA-Public Use
  Company Number: JP-PFIZER INC-2010123394

PATIENT
  Age: 44 Year
  Sex: Female

DRUGS (4)
  1. CELECOX [Suspect]
     Indication: RHEUMATOID ARTHRITIS
     Dosage: 200 MG, 2X/DAY
     Route: 048
     Dates: start: 20100628, end: 20100819
  2. CELECOX [Suspect]
     Dosage: 200 MG, 2X/DAY
     Dates: start: 20100828, end: 20100924
  3. LOXONIN [Suspect]
     Indication: RHEUMATOID ARTHRITIS
     Dosage: 60 MG, 3X/DAY
     Route: 048
     Dates: start: 20100820, end: 20100827
  4. LOXONIN [Suspect]
     Dosage: 60 MG, 3X/DAY
     Dates: start: 20100925, end: 20100928

REACTIONS (5)
  - ABDOMINAL PAIN [None]
  - DIARRHOEA [None]
  - OEDEMA PERIPHERAL [None]
  - PALPITATIONS [None]
  - TACHYCARDIA PAROXYSMAL [None]
